FAERS Safety Report 26122926 (Version 2)
Quarter: 2025Q4

REPORT INFORMATION
  Report Type: Spontaneous
  Country: EU (occurrence: EU)
  Receive Date: 20251204
  Receipt Date: 20251211
  Transmission Date: 20260118
  Serious: Yes (Other)
  Sender: PFIZER
  Company Number: None

PATIENT
  Age: 37 Year
  Sex: Female

DRUGS (5)
  1. RITUXIMAB [Suspect]
     Active Substance: RITUXIMAB
     Indication: Myasthenia gravis
     Dosage: 500 MG, EVERY 6 MONTHS
     Route: 042
     Dates: start: 20250325
  2. PROTOPIC [Concomitant]
     Active Substance: TACROLIMUS
     Dosage: UNK, 0.5 DAY
     Dates: start: 20250212
  3. OCTAGAM IMMUNE GLOBULIN (HUMAN) [Concomitant]
     Active Substance: HUMAN IMMUNOGLOBULIN G
     Dosage: 200 ML, EVERY 4 WEEKS
     Dates: start: 20210916
  4. MESTINON [Concomitant]
     Active Substance: PYRIDOSTIGMINE BROMIDE
     Dosage: 60 MG, DAILY (1 TABLET, 3-6 TIMES A DAY)
     Dates: start: 20200626
  5. MESTINON [Concomitant]
     Active Substance: PYRIDOSTIGMINE BROMIDE
     Dosage: 10 MG (2-6 TABLES 3-6 TIMES A DAY)
     Dates: start: 20200626

REACTIONS (5)
  - Arthralgia [Recovered/Resolved]
  - Hypoaesthesia oral [Recovered/Resolved]
  - Urticaria [Recovered/Resolved]
  - Musculoskeletal stiffness [Recovered/Resolved]
  - Off label use [Unknown]

NARRATIVE: CASE EVENT DATE: 20250325
